FAERS Safety Report 13122468 (Version 2)
Quarter: 2017Q3

REPORT INFORMATION
  Report Type: Spontaneous
  Country: FR (occurrence: FR)
  Receive Date: 20170117
  Receipt Date: 20170807
  Transmission Date: 20171127
  Serious: Yes (Hospitalization)
  Sender: FDA-Public Use
  Company Number: FR-PFIZER INC-2017015201

PATIENT
  Age: 72 Year
  Sex: Male

DRUGS (15)
  1. VINCRISTINE SULFATE. [Suspect]
     Active Substance: VINCRISTINE SULFATE
     Indication: DIFFUSE LARGE B-CELL LYMPHOMA
     Dosage: 1.5 MG, UNK (C1D1)
     Route: 042
     Dates: start: 20161027, end: 20161027
  2. VINCRISTINE SULFATE. [Suspect]
     Active Substance: VINCRISTINE SULFATE
     Dosage: 1.5 MG, UNK (C2D1)
     Route: 042
     Dates: start: 20161123, end: 20161123
  3. INNOHEP [Concomitant]
     Active Substance: TINZAPARIN SODIUM
  4. SERESTA [Concomitant]
     Active Substance: OXAZEPAM
  5. METHOTREXATE (METHOTREXATE SODIUM) [Suspect]
     Active Substance: METHOTREXATE SODIUM
     Indication: DIFFUSE LARGE B-CELL LYMPHOMA
     Dosage: 7000 MG, UNK (C1D1)
     Route: 042
     Dates: start: 20161027, end: 20161027
  6. MEDROL [Concomitant]
     Active Substance: METHYLPREDNISOLONE
  7. VINCRISTINE SULFATE. [Suspect]
     Active Substance: VINCRISTINE SULFATE
     Dosage: 1.5 MG, UNK (C1D15)
     Route: 042
     Dates: start: 20161110, end: 20161110
  8. METHOTREXATE (METHOTREXATE SODIUM) [Suspect]
     Active Substance: METHOTREXATE SODIUM
     Dosage: 7000 MG, UNK (C2D1)
     Route: 042
     Dates: start: 20161123, end: 20161123
  9. CALCIDOSE VITAMINE D [Concomitant]
     Active Substance: CALCIUM\CHOLECALCIFEROL
     Route: 048
  10. DEROXAT [Concomitant]
     Active Substance: PAROXETINE HYDROCHLORIDE
  11. OFLOCET [Concomitant]
     Active Substance: OFLOXACIN
  12. METHOTREXATE (METHOTREXATE SODIUM) [Suspect]
     Active Substance: METHOTREXATE SODIUM
     Dosage: 7000 MG, UNK (C1D15)
     Route: 042
     Dates: start: 20161110, end: 20161110
  13. NATULAN [Suspect]
     Active Substance: PROCARBAZINE HYDROCHLORIDE
     Indication: DIFFUSE LARGE B-CELL LYMPHOMA
     Dosage: 200 MG, UNK (C1D1-D7)
     Route: 042
     Dates: start: 20161027, end: 20161102
  14. MABTHERA [Suspect]
     Active Substance: RITUXIMAB
     Indication: DIFFUSE LARGE B-CELL LYMPHOMA
     Dosage: 700 MG, UNK (C1D1)
     Route: 042
     Dates: start: 20161027, end: 20161027
  15. IMOVANE [Concomitant]
     Active Substance: ZOPICLONE

REACTIONS (1)
  - Hepatocellular injury [Recovered/Resolved]

NARRATIVE: CASE EVENT DATE: 20161102
